FAERS Safety Report 25904095 (Version 2)
Quarter: 2025Q4

REPORT INFORMATION
  Report Type: Report from Study
  Country: US (occurrence: US)
  Receive Date: 20251010
  Receipt Date: 20251017
  Transmission Date: 20260118
  Serious: Yes (Other)
  Sender: CSL BEHRING
  Company Number: US-BEH-2025220325

PATIENT
  Age: 17 Year
  Sex: Male

DRUGS (4)
  1. GARADACIMAB [Suspect]
     Active Substance: GARADACIMAB
     Indication: Hereditary angioedema
     Dosage: 200 IU/KG, BIW
     Route: 058
  2. GARADACIMAB [Suspect]
     Active Substance: GARADACIMAB
     Indication: Prophylaxis
     Dosage: UNK
     Route: 065
     Dates: start: 20250922
  3. GARADACIMAB [Suspect]
     Active Substance: GARADACIMAB
     Dosage: 400 MG, ONCE FOR LOADING DOSE
     Route: 058
     Dates: start: 20250919, end: 20250919
  4. GARADACIMAB [Suspect]
     Active Substance: GARADACIMAB
     Dosage: 1.2 ML, QMT
     Route: 058

REACTIONS (8)
  - Hereditary angioedema [Recovering/Resolving]
  - Peripheral swelling [Not Recovered/Not Resolved]
  - Lip swelling [Not Recovered/Not Resolved]
  - Drug ineffective [Unknown]
  - Hereditary angioedema [Unknown]
  - Hereditary angioedema [Unknown]
  - Inappropriate schedule of product administration [Unknown]
  - Rash [Unknown]

NARRATIVE: CASE EVENT DATE: 20250919
